FAERS Safety Report 8016347-6 (Version None)
Quarter: 2011Q4

REPORT INFORMATION
  Report Type: 
  Country: None (occurrence: None)
  Receive Date: 20111230
  Receipt Date: 20111227
  Transmission Date: 20120403
  Serious: Yes (Hospitalization, Disabling, Other)
  Sender: FDA-Public Use
  Company Number: US-MERCK-1102USA01699

PATIENT
  Age: 73 Year
  Sex: Female
  Weight: 92 kg

DRUGS (11)
  1. ACIPHEX [Concomitant]
     Indication: DYSPEPSIA
     Route: 065
     Dates: start: 20020101
  2. VITAMINS (UNSPECIFIED) [Concomitant]
     Route: 065
     Dates: start: 20090101
  3. ALENDRONATE SODIUM [Suspect]
     Indication: OSTEOPOROSIS
     Route: 048
     Dates: start: 20080603
  4. FOSAMAX [Suspect]
     Indication: OSTEOPOROSIS
     Route: 048
     Dates: start: 20080101, end: 20100301
  5. CALCIUM (UNSPECIFIED) [Concomitant]
     Route: 065
     Dates: start: 20090101
  6. GABAPENTIN [Concomitant]
     Indication: RESTLESS LEGS SYNDROME
     Route: 065
     Dates: start: 20020101
  7. PAXIL [Concomitant]
     Indication: ANXIETY
     Route: 065
     Dates: start: 20000101
  8. SYNTHROID [Concomitant]
     Indication: HYPOTHYROIDISM
     Route: 065
     Dates: start: 19900101
  9. FOSAMAX [Suspect]
     Indication: OSTEOPOROSIS PROPHYLAXIS
     Route: 048
     Dates: start: 20080101, end: 20100301
  10. VITAMIN D (UNSPECIFIED) [Concomitant]
     Route: 065
     Dates: start: 20090101
  11. LISINOPRIL [Concomitant]
     Indication: HYPERTENSION
     Route: 065
     Dates: start: 19800101

REACTIONS (32)
  - PARAESTHESIA [None]
  - DYSPNOEA EXERTIONAL [None]
  - FALL [None]
  - CHEST DISCOMFORT [None]
  - DIARRHOEA [None]
  - FEELING JITTERY [None]
  - HYPERPARATHYROIDISM [None]
  - CELLULITIS [None]
  - STASIS DERMATITIS [None]
  - INCREASED TENDENCY TO BRUISE [None]
  - OSTEOARTHRITIS [None]
  - CYSTITIS [None]
  - URINARY INCONTINENCE [None]
  - FEMUR FRACTURE [None]
  - ARTHRALGIA [None]
  - CHEST PAIN [None]
  - STRESS FRACTURE [None]
  - HYPOAESTHESIA [None]
  - DEPRESSION [None]
  - HAEMARTHROSIS [None]
  - ARTHROPATHY [None]
  - OEDEMA PERIPHERAL [None]
  - ESSENTIAL HYPERTENSION [None]
  - ANAEMIA POSTOPERATIVE [None]
  - PARATHYROID TUMOUR BENIGN [None]
  - VITAMIN B12 DEFICIENCY [None]
  - HAEMORRHAGIC ANAEMIA [None]
  - MEDICAL DEVICE COMPLICATION [None]
  - HYPERCORTICOIDISM [None]
  - VEIN DISORDER [None]
  - HYPERTONIC BLADDER [None]
  - DYSURIA [None]
